FAERS Safety Report 8979647 (Version 1)
Quarter: 2012Q4

REPORT INFORMATION
  Report Type: 
  Country: US (occurrence: US)
  Receive Date: 20121221
  Receipt Date: 20121221
  Transmission Date: 20130627
  Serious: Yes (Other)
  Sender: FDA-Public Use
  Company Number: PHEH2012US024301

PATIENT
  Sex: Female

DRUGS (3)
  1. FEMARA [Suspect]
     Indication: HORMONE THERAPY
  2. ESTROGEN [Suspect]
  3. CALCIUM [Concomitant]
     Indication: OSTEOPOROSIS

REACTIONS (6)
  - Bone disorder [Unknown]
  - Gastrointestinal disorder [Unknown]
  - Malaise [Unknown]
  - Asthenia [Unknown]
  - Hot flush [Unknown]
  - Head discomfort [Unknown]
